FAERS Safety Report 12064287 (Version 4)
Quarter: 2019Q4

REPORT INFORMATION
  Report Type: Spontaneous
  Country: FR (occurrence: FR)
  Receive Date: 20160210
  Receipt Date: 20191025
  Transmission Date: 20200122
  Serious: Yes (Death, Hospitalization, Other)
  Sender: FDA-Public Use
  Company Number: FR-PFIZER INC-2015395027

PATIENT
  Age: 74 Year
  Sex: Female
  Weight: 61.6 kg

DRUGS (21)
  1. INVANZ [Suspect]
     Active Substance: ERTAPENEM SODIUM
     Indication: URINARY TRACT INFECTION
  2. MONICOR L.P. [Concomitant]
     Dosage: 2 DF, 2X/DAY
     Route: 048
     Dates: start: 20150911
  3. CLOPIDOGREL [Concomitant]
     Active Substance: CLOPIDOGREL BISULFATE
     Dosage: 75 MG, 1X/DAY AT NOON
     Route: 048
     Dates: start: 20150903
  4. EDUCTYL [Concomitant]
     Active Substance: POTASSIUM BITARTRATE\SODIUM BICARBONATE
     Dosage: 1 DF, 1X/DAY (1 DF QD AT 8:00 AM)
     Dates: start: 20150903
  5. INVANZ [Suspect]
     Active Substance: ERTAPENEM SODIUM
     Indication: STAPHYLOCOCCAL INFECTION
     Dosage: 1 G, 1X/DAY
     Route: 058
     Dates: start: 20150925, end: 20150928
  6. DALACINE [CLINDAMYCIN HYDROCHLORIDE] [Concomitant]
     Active Substance: CLINDAMYCIN HYDROCHLORIDE
     Indication: STAPHYLOCOCCAL INFECTION
     Dosage: 600 MG, 3X/DAY (300 MG, 2 TABLET, MORNING, MIDDLY AND EVENING)
     Route: 048
     Dates: start: 20150903, end: 20150911
  7. PLAVIX [Concomitant]
     Active Substance: CLOPIDOGREL BISULFATE
     Dosage: 75 MG, 1X/DAY
     Route: 048
  8. PREGABALIN. [Concomitant]
     Active Substance: PREGABALIN
     Dosage: 100 MG, UNK
     Route: 048
     Dates: start: 20150903, end: 20150920
  9. LANSOPRAZOLE. [Concomitant]
     Active Substance: LANSOPRAZOLE
     Dosage: 30 MG, 1X/DAY (1 DF QD AT 7:00 PM)
     Route: 048
     Dates: start: 20150903
  10. TAZOCILLINE [Suspect]
     Active Substance: PIPERACILLIN SODIUM\TAZOBACTAM SODIUM
     Indication: STAPHYLOCOCCAL INFECTION
     Dosage: 4 G, SINGLE
     Route: 042
     Dates: start: 20150925, end: 20150925
  11. MONICOR L.P. [Concomitant]
     Dosage: 20 MG, 4X/DAY
     Route: 048
  12. DALACINE [CLINDAMYCIN HYDROCHLORIDE] [Concomitant]
     Active Substance: CLINDAMYCIN HYDROCHLORIDE
     Indication: PSEUDOMONAS INFECTION
  13. FUROSEMIDE. [Concomitant]
     Active Substance: FUROSEMIDE
     Dosage: 40 MG, 2X/DAY
     Route: 048
  14. MOVICOL [Concomitant]
     Active Substance: POLYETHYLENE GLYCOL 3350\POTASSIUM CHLORIDE\SODIUM BICARBONATE\SODIUM CHLORIDE
     Dosage: 2 DF, 1X/DAY (2 DF, QAM)
     Dates: start: 20150903
  15. TAZOCILLINE [Suspect]
     Active Substance: PIPERACILLIN SODIUM\TAZOBACTAM SODIUM
     Indication: PSEUDOMONAS INFECTION
  16. INVANZ [Suspect]
     Active Substance: ERTAPENEM SODIUM
     Indication: PSEUDOMONAS INFECTION
  17. NORMACOL [STERCULIA URENS GUM] [Concomitant]
     Dosage: 1 DF, 1X/DAY(1 DF QD AT 8:00 AM)
     Dates: start: 20150904
  18. OFLOCET [OFLOXACIN] [Concomitant]
     Active Substance: OFLOXACIN
     Indication: STAPHYLOCOCCAL INFECTION
     Dosage: 200 MG, 2X/DAY
     Route: 048
     Dates: start: 20150903, end: 20150923
  19. OFLOCET [OFLOXACIN] [Concomitant]
     Active Substance: OFLOXACIN
     Indication: PSEUDOMONAS INFECTION
  20. CALCIPARINE [Concomitant]
     Active Substance: HEPARIN CALCIUM
     Dosage: 5000 IU, 3X/DAY
     Route: 058
     Dates: start: 20150903, end: 20150917
  21. FUROSEMIDE. [Concomitant]
     Active Substance: FUROSEMIDE
     Dosage: 1 DF, 2X/DAY
     Route: 048
     Dates: start: 20150925

REACTIONS (1)
  - Immune thrombocytopenic purpura [Recovered/Resolved]

NARRATIVE: CASE EVENT DATE: 20150928
